FAERS Safety Report 16566717 (Version 1)
Quarter: 2019Q3

REPORT INFORMATION
  Report Type: Spontaneous
  Country: AU (occurrence: AU)
  Receive Date: 20190712
  Receipt Date: 20190712
  Transmission Date: 20191004
  Serious: Yes (Death, Disabling, Other)
  Sender: FDA-Public Use
  Company Number: AU-MYLANLABS-2019M1065083

PATIENT
  Age: 60 Year
  Sex: Female

DRUGS (4)
  1. FOLIC ACID. [Concomitant]
     Active Substance: FOLIC ACID
     Indication: ARTHRALGIA
     Route: 065
  2. HYDROXYCHLOROQUINE [Suspect]
     Active Substance: HYDROXYCHLOROQUINE
     Indication: SYSTEMIC LUPUS ERYTHEMATOSUS
     Route: 065
  3. METHOTREXATE. [Suspect]
     Active Substance: METHOTREXATE
     Indication: ARTHRALGIA
     Dosage: 20 MILLIGRAM, QW
     Route: 065
  4. PREDNISOLONE. [Suspect]
     Active Substance: PREDNISOLONE
     Indication: SYSTEMIC LUPUS ERYTHEMATOSUS
     Dosage: 12 MILLIGRAM, QD
     Route: 065

REACTIONS (9)
  - Diplopia [Unknown]
  - Coordination abnormal [Unknown]
  - Holmes tremor [Unknown]
  - Dysarthria [Unknown]
  - Infection reactivation [Fatal]
  - Ataxia [Unknown]
  - Oscillopsia [Unknown]
  - JC virus granule cell neuronopathy [Fatal]
  - Nystagmus [Unknown]
